FAERS Safety Report 12639815 (Version 1)
Quarter: 2016Q3

REPORT INFORMATION
  Report Type: Report from Study
  Country: GB (occurrence: GB)
  Receive Date: 20160810
  Receipt Date: 20160810
  Transmission Date: 20161109
  Serious: Yes (Hospitalization, Other)
  Sender: FDA-Public Use
  Company Number: GB-ASTELLAS-2016US015516

PATIENT
  Age: 71 Year
  Sex: Male
  Weight: 113 kg

DRUGS (21)
  1. BUTRANS [Concomitant]
     Active Substance: BUPRENORPHINE
     Indication: ARTHRITIS
     Dosage: 5 MG, WEEKLY
     Route: 050
     Dates: start: 20160120
  2. ENZALUTAMIDE [Suspect]
     Active Substance: ENZALUTAMIDE
     Route: 048
     Dates: start: 20160414
  3. SPIRONOLACTONE. [Concomitant]
     Active Substance: SPIRONOLACTONE
     Indication: CARDIAC DISORDER
     Route: 048
     Dates: start: 200508
  4. ENZALUTAMIDE [Suspect]
     Active Substance: ENZALUTAMIDE
     Indication: PROSTATE CANCER METASTATIC
     Route: 048
     Dates: start: 20150813, end: 20160411
  5. FULTIUM [Concomitant]
     Active Substance: CHOLECALCIFEROL
     Indication: VITAMIN D DEFICIENCY
     Route: 048
     Dates: start: 201508
  6. VICTOZA [Concomitant]
     Active Substance: LIRAGLUTIDE
     Route: 058
     Dates: start: 201509
  7. OMEPRAZOLE. [Concomitant]
     Active Substance: OMEPRAZOLE
     Indication: GASTRIC DISORDER
     Route: 048
     Dates: start: 200509
  8. WARFARIN [Concomitant]
     Active Substance: WARFARIN
     Indication: ANTICOAGULANT THERAPY
     Dosage: 3 MG, AS DIRECTED
     Route: 048
     Dates: start: 200010
  9. LISINOPRIL. [Concomitant]
     Active Substance: LISINOPRIL
     Indication: CARDIAC DISORDER
     Route: 048
  10. TRAMADOL. [Concomitant]
     Active Substance: TRAMADOL
     Indication: ARTHRITIS
     Route: 048
     Dates: start: 201506
  11. INSULIN GLARGINE [Concomitant]
     Active Substance: INSULIN GLARGINE
     Indication: DIABETES MELLITUS
     Dosage: 40 IU, AS DIRECTED
     Route: 058
     Dates: start: 201101
  12. GLICLAZIDE [Concomitant]
     Active Substance: GLICLAZIDE
     Indication: DIABETES MELLITUS
     Route: 048
     Dates: start: 200707
  13. BUMETANIDE. [Concomitant]
     Active Substance: BUMETANIDE
     Indication: CARDIAC DISORDER
     Route: 048
     Dates: start: 200509
  14. BUTRANS [Concomitant]
     Active Substance: BUPRENORPHINE
     Indication: PAIN
     Dosage: 10MG+20MG, WEEKLY
     Route: 050
  15. TRAMADOL. [Concomitant]
     Active Substance: TRAMADOL
     Route: 048
     Dates: start: 20151227
  16. QUININE SULFATE. [Concomitant]
     Active Substance: QUININE SULFATE
     Indication: ARTHRITIS
     Dosage: 300 MG, ONCE DAILY AT NIGHT
     Route: 048
     Dates: start: 200409
  17. VICTOZA [Concomitant]
     Active Substance: LIRAGLUTIDE
     Indication: APPETITE DISORDER
     Dosage: 0.6 MG, ONCE DAILY
     Route: 058
     Dates: start: 201507
  18. NOVOMIX [Concomitant]
     Active Substance: INSULIN ASPART
     Indication: DIABETES MELLITUS
     Dosage: 30GE + 20UNITS, OTHER
     Route: 058
     Dates: start: 200801
  19. PRAVASTATIN. [Concomitant]
     Active Substance: PRAVASTATIN
     Indication: BLOOD CHOLESTEROL
     Route: 048
     Dates: start: 201503
  20. GABAPENTINE [Concomitant]
     Active Substance: GABAPENTIN
     Indication: PAIN
     Dosage: UNK UNK, UNKNOWN FREQ.
     Route: 065
  21. QUININE SULFATE. [Concomitant]
     Active Substance: QUININE SULFATE
     Indication: MUSCLE SPASMS

REACTIONS (3)
  - Arthritis [Recovered/Resolved]
  - Mobility decreased [Recovered/Resolved]
  - Procedural pain [Recovered/Resolved]

NARRATIVE: CASE EVENT DATE: 201601
